FAERS Safety Report 14003483 (Version 1)
Quarter: 2017Q3

REPORT INFORMATION
  Report Type: Spontaneous
  Country: IN (occurrence: IN)
  Receive Date: 20170922
  Receipt Date: 20170922
  Transmission Date: 20171128
  Serious: No
  Sender: FDA-Public Use
  Company Number: IN-LUPIN PHARMACEUTICALS INC.-2017-03558

PATIENT
  Age: 36 Year
  Sex: Male

DRUGS (1)
  1. VORICONAZOLE TABLET, 200 MG [Suspect]
     Active Substance: VORICONAZOLE
     Indication: FUNGAL INFECTION
     Dosage: 1 DF, QD
     Route: 048
     Dates: start: 201608

REACTIONS (2)
  - Liver disorder [Unknown]
  - Blood creatinine increased [Unknown]
